FAERS Safety Report 7569027-5 (Version None)
Quarter: 2011Q2

REPORT INFORMATION
  Report Type: 
  Country: None (occurrence: None)
  Receive Date: 20110623
  Receipt Date: 20110608
  Transmission Date: 20111010
  Serious: Yes (Hospitalization)
  Sender: FDA-Public Use
  Company Number: IT-PFIZER INC-2010058361

PATIENT
  Age: 74 Year
  Sex: Female

DRUGS (5)
  1. BISOPROLOL [Concomitant]
     Indication: HYPERTENSION
     Dosage: 2.5 MG, UNK
     Route: 048
  2. SUTENT [Suspect]
     Indication: RENAL CELL CARCINOMA
     Dosage: 50 MG, 1X/DAY
     Route: 048
     Dates: start: 20080714, end: 20090507
  3. VALSARTAN [Concomitant]
     Indication: HYPERTENSION
     Dosage: 160 MG, UNK
     Route: 048
  4. LASITONE [Concomitant]
     Route: 048
  5. ALLOPURINOL [Concomitant]
     Indication: HYPERURICAEMIA
     Dosage: 150 MG, UNK
     Route: 048

REACTIONS (6)
  - VOMITING [None]
  - ASTHENIA [None]
  - CHOLELITHIASIS [None]
  - NAUSEA [None]
  - ANAEMIA [None]
  - PANCREATITIS [None]
